FAERS Safety Report 5612456-7 (Version None)
Quarter: 2008Q1

REPORT INFORMATION
  Report Type: 
  Country: None (occurrence: None)
  Receive Date: 20080201
  Receipt Date: 20080201
  Transmission Date: 20080703
  Serious: Yes (Other)
  Sender: FDA-Public Use
  Company Number: None

PATIENT
  Age: 63 Year
  Sex: Female
  Weight: 68.9467 kg

DRUGS (8)
  1. ZOLPIDEM TARTRATE [Suspect]
     Indication: INSOMNIA
     Dosage: 1 TAB EVERY NIGHT AT BEDTIME
     Dates: start: 20070701
  2. CRESTOR [Concomitant]
  3. MELOXICAM [Concomitant]
  4. TOPROL-XL [Concomitant]
  5. RANITIDINE [Concomitant]
  6. MAXZIDE [Concomitant]
  7. LIDODERM [Concomitant]
  8. PROTONIX [Concomitant]

REACTIONS (4)
  - FEELING JITTERY [None]
  - INSOMNIA [None]
  - NIGHTMARE [None]
  - POOR QUALITY SLEEP [None]
